FAERS Safety Report 9474376 (Version 2)
Quarter: 2013Q3

REPORT INFORMATION
  Report Type: Spontaneous
  Country: FR (occurrence: FR)
  Receive Date: 20130823
  Receipt Date: 20130830
  Transmission Date: 20140515
  Serious: Yes (Hospitalization)
  Sender: FDA-Public Use
  Company Number: FR-PFIZER INC-2013239894

PATIENT
  Age: 86 Year
  Sex: Female

DRUGS (9)
  1. CORDARONE [Suspect]
     Dosage: 1 DF, DAILY
     Route: 048
     Dates: start: 201210, end: 20130731
  2. TAHOR [Suspect]
     Dosage: 10 MG, DAILY
     Route: 048
  3. AMLOR [Suspect]
     Dosage: 5 MG, DAILY
     Route: 048
  4. RAMIPRIL [Suspect]
     Dosage: 2.5 MG, DAILY
     Route: 048
  5. OGAST [Suspect]
     Dosage: UNK
     Route: 048
  6. PREVISCAN [Suspect]
     Dosage: 10 MG, DAILY
     Route: 048
     Dates: start: 201210
  7. LASILIX [Suspect]
     Dosage: 60 MG, DAILY
     Route: 048
  8. LEVOTHYROX [Suspect]
     Dosage: UNK
     Route: 048
  9. UVEDOSE [Concomitant]
     Dosage: UNK

REACTIONS (1)
  - Lung disorder [Not Recovered/Not Resolved]
